FAERS Safety Report 23725434 (Version 1)
Quarter: 2024Q2

REPORT INFORMATION
  Report Type: Spontaneous
  Country: JP (occurrence: JP)
  Receive Date: 20240410
  Receipt Date: 20240410
  Transmission Date: 20240716
  Serious: No
  Sender: FDA-Public Use
  Company Number: JP-MSD-2404JPN000848J

PATIENT

DRUGS (1)
  1. LAGEVRIO [Suspect]
     Active Substance: MOLNUPIRAVIR
     Indication: COVID-19 treatment
     Dosage: OVERDOSE; POSSIBILITY OF TAKE THE DRUG AT NOON
     Route: 048

REACTIONS (2)
  - Overdose [Unknown]
  - Product use issue [Unknown]
